FAERS Safety Report 5871819-5 (Version None)
Quarter: 2008Q3

REPORT INFORMATION
  Report Type: 
  Country: None (occurrence: None)
  Receive Date: 20080905
  Receipt Date: 20080903
  Transmission Date: 20090109
  Serious: Yes (Death)
  Sender: FDA-Public Use
  Company Number: FR-BOEHRINGER INGELHEIM GMBH, GERMANY-2008-DE-05244GD

PATIENT

DRUGS (8)
  1. MORPHINE [Suspect]
     Indication: ANAESTHETIC PREMEDICATION
     Route: 058
  2. MORPHINE [Suspect]
     Indication: SPINAL ANAESTHESIA
     Dosage: 4 MCG/KG (100 MCG/ML)
     Route: 037
  3. CLONIDINE [Suspect]
     Indication: SPINAL ANAESTHESIA
     Dosage: 1 MCG/KG (150 MCG/ML)
     Route: 037
  4. REMIFENTANIL [Suspect]
     Indication: GENERAL ANAESTHESIA
     Dosage: TARGETED-CONTROLLED INFUSION TO ACHIEVE A CONCENTRATION BETWEEN 2 AND 4 NG/ML
  5. MIDAZOLAM HCL [Concomitant]
     Indication: ANAESTHETIC PREMEDICATION
     Route: 048
  6. ETOMIDATE [Concomitant]
     Indication: INDUCTION OF ANAESTHESIA
     Dosage: 0.25 MG/KG
  7. CISATRACURIUM [Concomitant]
     Indication: ENDOTRACHEAL INTUBATION
     Dosage: 0.20 MG/KG
  8. SEVOFLURANE [Concomitant]
     Indication: MAINTENANCE OF ANAESTHESIA
     Dosage: 0.5%-2%

REACTIONS (1)
  - CEREBROVASCULAR ACCIDENT [None]
